FAERS Safety Report 10363208 (Version 2)
Quarter: 2014Q3

REPORT INFORMATION
  Report Type: Spontaneous
  Country: JP (occurrence: JP)
  Receive Date: 20140805
  Receipt Date: 20140822
  Transmission Date: 20150326
  Serious: Yes (Hospitalization)
  Sender: FDA-Public Use
  Company Number: JP-BAYER-2014-113132

PATIENT
  Age: 52 Year
  Sex: Male
  Weight: 73 kg

DRUGS (3)
  1. BETAFERON [Suspect]
     Active Substance: INTERFERON BETA-1B
     Indication: MULTIPLE SCLEROSIS
     Dosage: UNK
     Route: 058
     Dates: end: 201407
  2. LIORESAL [Concomitant]
     Active Substance: BACLOFEN
     Dosage: DAILY DOSE 30 MG
     Route: 048
  3. BETAFERON [Suspect]
     Active Substance: INTERFERON BETA-1B
     Indication: MULTIPLE SCLEROSIS
     Dosage: UNK
     Route: 058
     Dates: start: 20140729

REACTIONS (7)
  - Injection site cellulitis [Recovered/Resolved]
  - Wound secretion [None]
  - Injection site warmth [None]
  - Injection site calcification [Not Recovered/Not Resolved]
  - Injection site cyst [None]
  - Wrong technique in drug usage process [None]
  - Injection site swelling [None]

NARRATIVE: CASE EVENT DATE: 20140714
